APPROVED DRUG PRODUCT: ZONEGRAN
Active Ingredient: ZONISAMIDE
Strength: 100MG
Dosage Form/Route: CAPSULE;ORAL
Application: N020789 | Product #001 | TE Code: AB
Applicant: ADVANZ PHARMA (US) CORP
Approved: Mar 27, 2000 | RLD: Yes | RS: Yes | Type: RX